FAERS Safety Report 13587716 (Version 2)
Quarter: 2017Q3

REPORT INFORMATION
  Report Type: Report from Study
  Country: US (occurrence: US)
  Receive Date: 20170526
  Receipt Date: 20170711
  Transmission Date: 20171127
  Serious: Yes (Hospitalization, Other)
  Sender: FDA-Public Use
  Company Number: US-JAZZ-2017-US-006920

PATIENT
  Sex: Male

DRUGS (1)
  1. CLOZAPINE ODT [Suspect]
     Active Substance: CLOZAPINE
     Indication: SCHIZOPHRENIA
     Dosage: UNK MG, QD
     Route: 048

REACTIONS (1)
  - Schizophrenia [Unknown]
